FAERS Safety Report 8137309-4 (Version None)
Quarter: 2012Q1

REPORT INFORMATION
  Report Type: 
  Country: None (occurrence: None)
  Receive Date: 20120215
  Receipt Date: 20120207
  Transmission Date: 20120608
  Serious: Yes (Other)
  Sender: FDA-Public Use
  Company Number: US-SHIRE-ALL1-2012-00603

PATIENT
  Sex: Female
  Weight: 64.853 kg

DRUGS (10)
  1. LAMICTAL [Concomitant]
     Indication: CONVULSION
  2. CLONAZEPAM [Concomitant]
     Indication: INSOMNIA
  3. CLONAZEPAM [Concomitant]
     Indication: ANXIETY
     Dosage: 0.5 MG, 1X/DAY:QD
     Route: 048
  4. VYVANSE [Suspect]
     Indication: BIPOLAR II DISORDER
  5. LEXAPRO [Concomitant]
     Indication: DEPRESSION
     Dosage: 40 MG, 1X/DAY:QD
     Route: 048
  6. LAMICTAL [Concomitant]
     Indication: MOOD SWINGS
     Dosage: 200 MG, 1X/DAY:QD
     Route: 048
  7. VYVANSE [Suspect]
     Indication: ATTENTION DEFICIT/HYPERACTIVITY DISORDER
     Dosage: 80 MG, 1X/DAY:QD (TWO 40 MG CAPSULES)
     Route: 048
     Dates: start: 20090101
  8. TRAZODONE HCL [Concomitant]
     Indication: INSOMNIA
  9. TRAZODONE HCL [Concomitant]
     Indication: DEPRESSION
     Dosage: 50 MG, 1X/DAY:QD
     Route: 048
  10. ZEGERID                            /00661201/ [Concomitant]
     Indication: GASTROOESOPHAGEAL REFLUX DISEASE
     Dosage: UNK, 1X/DAY:QD (40-1100 MG)
     Route: 048

REACTIONS (10)
  - MENTAL IMPAIRMENT [None]
  - INTENTIONAL DRUG MISUSE [None]
  - DEPRESSION [None]
  - PRODUCT QUALITY ISSUE [None]
  - CONFUSIONAL STATE [None]
  - LETHARGY [None]
  - DRUG WITHDRAWAL SYNDROME [None]
  - OVERDOSE [None]
  - DRUG EFFECT DECREASED [None]
  - DRUG INEFFECTIVE [None]
